FAERS Safety Report 4620262-5 (Version None)
Quarter: 2005Q1

REPORT INFORMATION
  Report Type: 
  Country: None (occurrence: None)
  Receive Date: 20050324
  Receipt Date: 20050303
  Transmission Date: 20050727
  Serious: Yes (Other)
  Sender: FDA-Public Use
  Company Number: JP_050306033

PATIENT
  Age: 68 Year
  Sex: Male

DRUGS (5)
  1. ONCOVIN [Suspect]
     Indication: NON-HODGKIN'S LYMPHOMA
     Dosage: 1MG OTHER
  2. RITUXAN (RITUXIBAM) [Concomitant]
  3. CYCLOPHOSPHAMIDE [Concomitant]
  4. ADRIAMYCIN PFS [Concomitant]
  5. PREDNISOLONE [Concomitant]

REACTIONS (1)
  - PNEUMONITIS [None]
